FAERS Safety Report 9464789 (Version 2)
Quarter: 2013Q3

REPORT INFORMATION
  Report Type: Spontaneous
  Country: JP (occurrence: JP)
  Receive Date: 20130819
  Receipt Date: 20130903
  Transmission Date: 20140515
  Serious: Yes (Other)
  Sender: FDA-Public Use
  Company Number: JP-GLAXOSMITHKLINE-B0915877A

PATIENT
  Age: 65 Year
  Sex: Male

DRUGS (1)
  1. FLOLAN [Suspect]
     Indication: PULMONARY HYPERTENSION
     Route: 042

REACTIONS (6)
  - Right ventricular failure [Unknown]
  - Cardiac output [Unknown]
  - Brain natriuretic peptide increased [Recovering/Resolving]
  - Blood sodium decreased [Unknown]
  - Blood osmolarity decreased [Unknown]
  - Urine osmolarity increased [Unknown]
